FAERS Safety Report 7865155-5 (Version None)
Quarter: 2011Q4

REPORT INFORMATION
  Report Type: 
  Country: None (occurrence: None)
  Receive Date: 20111028
  Receipt Date: 20101022
  Transmission Date: 20120403
  Serious: No
  Sender: FDA-Public Use
  Company Number: US-GLAXOSMITHKLINE-A0888305A

PATIENT
  Age: 10 Year
  Sex: Male

DRUGS (5)
  1. SINGULAIR [Suspect]
     Route: 048
     Dates: start: 20101007, end: 20101020
  2. ADVAIR DISKUS 100/50 [Suspect]
     Indication: ASTHMA
     Dosage: 1PUFF VARIABLE DOSE
     Route: 055
     Dates: start: 20100101
  3. FLOVENT [Suspect]
     Indication: ASTHMA
     Dosage: 2PUFF SINGLE DOSE
     Route: 055
     Dates: start: 20101022
  4. NO CONCURRENT MEDICATION [Concomitant]
  5. CICLESONIDE [Suspect]
     Dates: start: 20101015

REACTIONS (3)
  - BALANCE DISORDER [None]
  - DIZZINESS [None]
  - PULMONARY FUNCTION TEST DECREASED [None]
